FAERS Safety Report 21064871 (Version 1)
Quarter: 2022Q3

REPORT INFORMATION
  Report Type: Spontaneous
  Country: HR (occurrence: HR)
  Receive Date: 20220711
  Receipt Date: 20220711
  Transmission Date: 20221027
  Serious: Yes (Other)
  Sender: FDA-Public Use
  Company Number: None

PATIENT
  Sex: Female

DRUGS (3)
  1. MORPHINE [Suspect]
     Active Substance: MORPHINE
     Indication: Product used for unknown indication
     Dosage: 1 DF = 1 TBL
     Route: 048
     Dates: start: 20220517, end: 20220517
  2. DEXKETOPROFEN\TRAMADOL [Suspect]
     Active Substance: DEXKETOPROFEN\TRAMADOL
     Indication: Product used for unknown indication
     Dosage: 1 DF= 75 MG TRAMADOL HYDROCHLORIDE + 25 MG DEXKETOPROFEN TROMETAMOL
     Route: 048
     Dates: start: 20220517, end: 20220517
  3. ACETAMINOPHEN\TRAMADOL HYDROCHLORIDE [Suspect]
     Active Substance: ACETAMINOPHEN\TRAMADOL HYDROCHLORIDE
     Indication: Product used for unknown indication
     Dosage: DF= 37,5 MG TRAMADOL HYDROCHLORIDE + 325 MG PARACETAMOL
     Route: 048
     Dates: start: 20220517, end: 20220517

REACTIONS (5)
  - Loss of consciousness [Unknown]
  - Suicide attempt [Unknown]
  - Intentional overdose [Unknown]
  - Oxygen saturation decreased [Unknown]
  - Somnolence [Unknown]

NARRATIVE: CASE EVENT DATE: 20220517
